FAERS Safety Report 5811963-1 (Version None)
Quarter: 2008Q3

REPORT INFORMATION
  Report Type: 
  Country: None (occurrence: None)
  Receive Date: 20080714
  Receipt Date: 20080704
  Transmission Date: 20090109
  Serious: Yes (Other)
  Sender: FDA-Public Use
  Company Number: 150-21880-08040196

PATIENT
  Age: 55 Year
  Sex: Male

DRUGS (6)
  1. REVLIMID [Suspect]
     Indication: MULTIPLE MYELOMA
     Dosage: 25 MG, 1 IN 1 D, ORAL
     Route: 048
     Dates: start: 20080213
  2. DEXACORTAL (DEXAMETHASONE) (TABLETS) [Concomitant]
  3. DELTISON (DELTISON) [Concomitant]
  4. ERYTHROPOIETIN (ERYTHROPOIETIN) [Concomitant]
  5. G-CSF (GRANULOCYTE COLONY STIMULATING FACTOR) [Concomitant]
  6. PREDNISOLONE [Concomitant]

REACTIONS (2)
  - ABSCESS [None]
  - COLITIS ULCERATIVE [None]
